APPROVED DRUG PRODUCT: NYSTATIN
Active Ingredient: NYSTATIN
Strength: 100,000 UNITS/GM
Dosage Form/Route: POWDER;TOPICAL
Application: A065321 | Product #001
Applicant: NESHER PHARMACEUTICALS USA LLC
Approved: Aug 18, 2006 | RLD: No | RS: No | Type: DISCN